FAERS Safety Report 19195537 (Version 1)
Quarter: 2021Q2

REPORT INFORMATION
  Report Type: Spontaneous
  Country: RU (occurrence: RU)
  Receive Date: 20210429
  Receipt Date: 20210429
  Transmission Date: 20210717
  Serious: Yes (Other)
  Sender: FDA-Public Use
  Company Number: RU-009507513-2104RUS006664

PATIENT
  Age: 16 Year
  Sex: Female

DRUGS (6)
  1. CASPOFUNGIN ACETATE. [Suspect]
     Active Substance: CASPOFUNGIN ACETATE
     Indication: SYSTEMIC MYCOSIS
     Dosage: 70 MG ON THE FIRST DAY
     Dates: start: 2018, end: 2018
  2. PREDNISOLONE. [Concomitant]
     Active Substance: PREDNISOLONE
     Indication: SYSTEMIC LUPUS ERYTHEMATOSUS
     Dosage: 1 MG/KG/DAY FOR THE PREVIOUS 3 MONTHS
     Dates: start: 201711, end: 201802
  3. CASPOFUNGIN ACETATE. [Suspect]
     Active Substance: CASPOFUNGIN ACETATE
     Dosage: FOLLOWED BY 50 MG/DAY
     Dates: start: 2018, end: 2018
  4. PREDNISOLONE. [Concomitant]
     Active Substance: PREDNISOLONE
     Dosage: REDUCED
     Dates: start: 2018
  5. PREDNISOLONE. [Concomitant]
     Active Substance: PREDNISOLONE
     Dosage: 10 MG/KG/DAY
     Dates: start: 201802, end: 2018
  6. DEXAMETHASONE. [Concomitant]
     Active Substance: DEXAMETHASONE
     Indication: SYSTEMIC LUPUS ERYTHEMATOSUS
     Dosage: 10 MG/SQUARE METER/DAY WITH SUBSEQUENT DOSE

REACTIONS (1)
  - Therapy partial responder [Recovered/Resolved]

NARRATIVE: CASE EVENT DATE: 2018
